FAERS Safety Report 9883887 (Version 3)
Quarter: 2014Q2

REPORT INFORMATION
  Report Type: Spontaneous
  Country: US (occurrence: US)
  Receive Date: 20140210
  Receipt Date: 20140422
  Transmission Date: 20141212
  Serious: Yes (Other)
  Sender: FDA-Public Use
  Company Number: US-SA-2013SA123180

PATIENT
  Age: 73 Year
  Sex: Female
  Weight: 108 kg

DRUGS (21)
  1. LANTUS SOLOSTAR [Suspect]
     Indication: TYPE 2 DIABETES MELLITUS
     Dosage: DOSE:20 UNIT(S)
     Route: 058
     Dates: start: 20131011, end: 20131204
  2. LANTUS SOLOSTAR [Suspect]
     Indication: TYPE 2 DIABETES MELLITUS
     Dosage: DOSE:20 UNIT(S)
     Route: 058
     Dates: start: 20131011, end: 20131204
  3. METFORMIN [Suspect]
     Indication: PRODUCT USED FOR UNKNOWN INDICATION
     Route: 065
  4. SOLOSTAR [Concomitant]
     Indication: TYPE 2 DIABETES MELLITUS
  5. PRO-AIR [Concomitant]
     Dosage: 2 PUFFS INTO LUNGS EVERY 6 HOURS AS NEEDED
  6. XANAX [Concomitant]
     Route: 048
  7. ASPIRIN [Concomitant]
     Route: 048
  8. VITAMIN D3 [Concomitant]
     Route: 048
  9. CELEXA [Concomitant]
     Route: 048
  10. VITAMIN B12 [Concomitant]
     Route: 048
  11. ADVAIR DISKUS [Concomitant]
     Dosage: INHALE 1 PUFF INTO LUNGS BY MOUTH EVERY 12 HOURS.?DOSE 250-50 MCG
  12. LASIX [Concomitant]
     Route: 048
  13. AMARYL [Concomitant]
     Route: 048
  14. NORCO [Concomitant]
     Dosage: 10-325 MG TABLET TID AS NEED
     Route: 048
  15. FEMARA [Concomitant]
     Route: 048
  16. TOPROL XL [Concomitant]
     Route: 048
  17. PRAVACHOL [Concomitant]
     Route: 048
  18. DELTASONE [Concomitant]
     Route: 048
  19. SPIRIVA [Concomitant]
     Dosage: INHALATION CAPSULES AS NEEDED
     Route: 045
  20. RESTORIL [Concomitant]
     Indication: SLEEP DISORDER
     Dosage: NIGHTLY ASNNED FOR SLEEP
     Route: 048
  21. VOLTAREN [Concomitant]
     Route: 061

REACTIONS (8)
  - Suicidal ideation [Unknown]
  - Depression [Unknown]
  - Weight decreased [Unknown]
  - Dysgeusia [Unknown]
  - Decreased appetite [Unknown]
  - Adverse event [Unknown]
  - Decreased interest [Unknown]
  - Blood glucose decreased [Unknown]
